FAERS Safety Report 4736362-5 (Version None)
Quarter: 2005Q3

REPORT INFORMATION
  Report Type: 
  Country: None (occurrence: None)
  Receive Date: 20050804
  Receipt Date: 20050617
  Transmission Date: 20060218
  Serious: Yes (Hospitalization)
  Sender: FDA-Public Use
  Company Number: 2005108419

PATIENT
  Age: 62 Year
  Sex: Male

DRUGS (7)
  1. SUDAFED 12 HOUR [Suspect]
     Indication: SINUS DISORDER
     Dosage: ORAL
     Route: 048
     Dates: start: 20040201
  2. CAFFEINE (CAFFEINE) [Suspect]
     Dosage: ^SIGNIFICANT AMOUNT^, ORAL
     Route: 048
  3. SILDENAFIL CITRATE (SILDENAFIL CITRATE0 [Concomitant]
  4. ACETYLSALICYLIC ACID SRT [Concomitant]
  5. EZETIMIBE (EZETIMIBE) [Concomitant]
  6. PRAMIPEXOLE (PRAMIPEXOLE0 [Concomitant]
  7. ZOLPIDEM TARTRATE [Concomitant]

REACTIONS (11)
  - ATRIAL FLUTTER [None]
  - BLOOD PRESSURE DECREASED [None]
  - CONDITION AGGRAVATED [None]
  - COUGH [None]
  - HEART RATE INCREASED [None]
  - INCREASED UPPER AIRWAY SECRETION [None]
  - PARKINSON'S DISEASE [None]
  - POSTNASAL DRIP [None]
  - PULMONARY CONGESTION [None]
  - SINUS CONGESTION [None]
  - SUPRAVENTRICULAR TACHYCARDIA [None]
